FAERS Safety Report 7397809-1 (Version None)
Quarter: 2011Q2

REPORT INFORMATION
  Report Type: 
  Country: None (occurrence: None)
  Receive Date: 20110406
  Receipt Date: 20110325
  Transmission Date: 20111010
  Serious: Yes (Hospitalization, Other)
  Sender: FDA-Public Use
  Company Number: FR-PFIZER INC-2011075329

PATIENT
  Age: 50 Year
  Sex: Female

DRUGS (15)
  1. LOVENOX [Suspect]
     Dosage: UNK
     Dates: start: 20110121, end: 20110221
  2. STILNOX [Concomitant]
     Dosage: UNK
     Dates: start: 20110202
  3. SKENAN [Concomitant]
     Dosage: UNK
     Dates: start: 20110202
  4. DALACINE [Concomitant]
     Dosage: UNK
     Dates: start: 20110217
  5. ATARAX [Suspect]
     Dosage: UNK
     Dates: start: 20110216, end: 20110219
  6. AMOXICILLIN [Concomitant]
     Dosage: UNK
     Dates: start: 20110117
  7. OFLOCET [Concomitant]
     Dosage: UNK
     Dates: start: 20110217
  8. GENTAMICIN [Concomitant]
     Dosage: UNK
     Dates: start: 20110117
  9. ORBENIN CAP [Suspect]
     Indication: ENDOCARDITIS STAPHYLOCOCCAL
     Dosage: UNK
     Dates: start: 20110118, end: 20110217
  10. ACETAMINOPHEN [Concomitant]
     Dosage: UNK
     Dates: start: 20110118
  11. RIFADIN [Suspect]
     Indication: ENDOCARDITIS STAPHYLOCOCCAL
     Dosage: UNK
     Dates: start: 20110128
  12. ZOVIRAX [Concomitant]
     Dosage: UNK
     Dates: start: 20110117
  13. VANCOMYCIN [Concomitant]
     Dosage: UNK
     Dates: start: 20110117
  14. SERESTA [Concomitant]
     Dosage: UNK
     Dates: start: 20110207
  15. ATARAX [Suspect]
     Dosage: UNK
     Dates: start: 20110128, end: 20110214

REACTIONS (1)
  - DRUG RASH WITH EOSINOPHILIA AND SYSTEMIC SYMPTOMS [None]
